FAERS Safety Report 19718509 (Version 3)
Quarter: 2024Q1

REPORT INFORMATION
  Report Type: Spontaneous
  Country: CA (occurrence: CA)
  Receive Date: 20210818
  Receipt Date: 20240103
  Transmission Date: 20240409
  Serious: Yes (Hospitalization, Other)
  Sender: FDA-Public Use
  Company Number: CA-PFIZER INC-2020481276

PATIENT
  Age: 77 Year
  Sex: Female

DRUGS (12)
  1. RUXIENCE [Suspect]
     Active Substance: RITUXIMAB-PVVR
     Indication: Rheumatoid arthritis
     Dosage: 1000 MG ON DAY 1 AND 15
     Route: 042
     Dates: start: 20201203, end: 20201217
  2. RUXIENCE [Suspect]
     Active Substance: RITUXIMAB-PVVR
     Dosage: 1000 MG ON DAY 1 AND 15
     Route: 042
     Dates: start: 20211102, end: 20211117
  3. RUXIENCE [Suspect]
     Active Substance: RITUXIMAB-PVVR
     Dosage: 1000 MG ON DAY 1 AND 15
     Route: 042
     Dates: start: 20220531, end: 20220614
  4. RUXIENCE [Suspect]
     Active Substance: RITUXIMAB-PVVR
     Dosage: 1000 MG ON DAY 1 AND 15
     Route: 042
     Dates: start: 20221213, end: 20221228
  5. RUXIENCE [Suspect]
     Active Substance: RITUXIMAB-PVVR
     Dosage: 1000 MG ON DAY 1 AND 15
     Route: 042
     Dates: start: 20230614
  6. RUXIENCE [Suspect]
     Active Substance: RITUXIMAB-PVVR
     Dosage: 1000 MG ON DAY 1 AND 15
     Route: 042
     Dates: start: 20230705
  7. CELEBREX [Concomitant]
     Active Substance: CELECOXIB
     Dosage: 1 DF, UNKNOWN DOSE
     Route: 065
  8. DIPHENHYDRAMINE [Concomitant]
     Active Substance: DIPHENHYDRAMINE
     Indication: Premedication
     Dosage: 25 MG
     Dates: start: 20201203, end: 20201203
  9. IBUPROFEN [Concomitant]
     Active Substance: IBUPROFEN
     Indication: Premedication
     Dosage: 600 MG
     Dates: start: 20201203, end: 20201203
  10. METHYLPREDNISOLONE [Concomitant]
     Active Substance: METHYLPREDNISOLONE
     Indication: Premedication
     Dosage: 100 MG
     Route: 042
     Dates: start: 20201203, end: 20201203
  11. PLAQUENIL [Concomitant]
     Active Substance: HYDROXYCHLOROQUINE SULFATE
     Dosage: 400 MG, 1X/DAY
     Dates: start: 20081107
  12. PLAQUENIL [Concomitant]
     Active Substance: HYDROXYCHLOROQUINE SULFATE
     Dosage: 40 MG, 1X/DAY
     Route: 065
     Dates: start: 20081107

REACTIONS (3)
  - Hip fracture [Unknown]
  - Hypertension [Recovered/Resolved]
  - Malaise [Unknown]

NARRATIVE: CASE EVENT DATE: 20201203
